FAERS Safety Report 16429552 (Version 1)
Quarter: 2019Q2

REPORT INFORMATION
  Report Type: Spontaneous
  Country: US (occurrence: US)
  Receive Date: 20190614
  Receipt Date: 20190614
  Transmission Date: 20190711
  Serious: No
  Sender: FDA-Public Use
  Company Number: US-GILEAD-2019-0413398

PATIENT
  Sex: Male

DRUGS (15)
  1. MELATONIN [Concomitant]
     Active Substance: MELATONIN
     Dosage: UNKNOWN
  2. RELAFEN [Concomitant]
     Active Substance: NABUMETONE
     Dosage: UNKNOWN
  3. VITAMIN B6 [Concomitant]
     Active Substance: PYRIDOXINE HYDROCHLORIDE
     Dosage: UNKNOWN
  4. ALBUTEROL SULFATE. [Concomitant]
     Active Substance: ALBUTEROL SULFATE
     Dosage: UNKNOWN
  5. MOBIC [Concomitant]
     Active Substance: MELOXICAM
     Dosage: UNKNOWN
  6. HYDROCHLORIC ACID [Concomitant]
     Active Substance: HYDROCHLORIC ACID
     Dosage: UNKNOWN
  7. VISTARIL [HYDROXYZINE EMBONATE] [Concomitant]
     Dosage: UNKNOWN
  8. DISULFIRAM. [Concomitant]
     Active Substance: DISULFIRAM
     Dosage: UNKNOWN
  9. EPCLUSA [Suspect]
     Active Substance: SOFOSBUVIR\VELPATASVIR
     Indication: CHRONIC HEPATITIS C
     Dosage: 1 DOSAGE FORM, QD
     Route: 048
     Dates: start: 201905
  10. DOXYCYCLINE HYCLATE. [Concomitant]
     Active Substance: DOXYCYCLINE HYCLATE
     Dosage: UNKNOWN
  11. ZOFRAN [Concomitant]
     Active Substance: ONDANSETRON HYDROCHLORIDE
     Dosage: UNKNOWN
  12. KENALOG IN ORABASE [Concomitant]
     Active Substance: TRIAMCINOLONE ACETONIDE
     Dosage: UNKNOWN
  13. LEXAPRO [Concomitant]
     Active Substance: ESCITALOPRAM OXALATE
     Dosage: UNKNOWN
  14. ALDACTONE [Concomitant]
     Active Substance: SPIRONOLACTONE
     Dosage: UNKNOWN
  15. XIFAXAN [Concomitant]
     Active Substance: RIFAXIMIN
     Dosage: UNKNOWN

REACTIONS (2)
  - Diarrhoea [Not Recovered/Not Resolved]
  - Arthropod bite [Unknown]
